FAERS Safety Report 5616020-5 (Version None)
Quarter: 2008Q1

REPORT INFORMATION
  Report Type: 
  Country: None (occurrence: None)
  Receive Date: 20080206
  Receipt Date: 20080122
  Transmission Date: 20080703
  Serious: No
  Sender: FDA-Public Use
  Company Number: US-BOEHRINGER INGELHEIM GMBH, GERMANY-2007-BP-25712BP

PATIENT
  Sex: Female

DRUGS (12)
  1. SPIRIVA [Suspect]
     Indication: CHRONIC OBSTRUCTIVE PULMONARY DISEASE
     Route: 055
  2. SPIRIVA [Suspect]
     Indication: ASTHMA
  3. SPIRIVA [Suspect]
     Indication: EMPHYSEMA
  4. FLOVENT [Concomitant]
  5. COMBIVENT [Concomitant]
  6. THEO-24 [Concomitant]
  7. ASMANEX TWISTHALER [Concomitant]
  8. CELEBREX [Concomitant]
  9. LEVOTHYROXINE SODIUM [Concomitant]
  10. LIPITOR [Concomitant]
  11. ALTACE [Concomitant]
  12. ZETIA [Concomitant]

REACTIONS (2)
  - DRUG INEFFECTIVE [None]
  - DYSPNOEA [None]
